FAERS Safety Report 25977573 (Version 4)
Quarter: 2025Q4

REPORT INFORMATION
  Report Type: Spontaneous
  Country: PH (occurrence: PH)
  Receive Date: 20251030
  Receipt Date: 20251212
  Transmission Date: 20260118
  Serious: Yes (Death, Life-Threatening, Hospitalization)
  Sender: ROCHE
  Company Number: PH-ROCHE-10000421542

PATIENT
  Age: 44 Year
  Sex: Female

DRUGS (1)
  1. ROZLYTREK [Suspect]
     Active Substance: ENTRECTINIB
     Indication: Product used for unknown indication

REACTIONS (5)
  - Therapy non-responder [Unknown]
  - Fatigue [Unknown]
  - Sluggishness [Unknown]
  - Asthenia [Unknown]
  - Cardiac arrest [Fatal]

NARRATIVE: CASE EVENT DATE: 20251024
